FAERS Safety Report 14291043 (Version 1)
Quarter: 2017Q4

REPORT INFORMATION
  Report Type: Spontaneous
  Country: US (occurrence: US)
  Receive Date: 20171215
  Receipt Date: 20171215
  Transmission Date: 20180321
  Serious: Yes (Other)
  Sender: FDA-Public Use
  Company Number: US-DSJP-DSU-2017-137429

PATIENT

DRUGS (1)
  1. BENICAR HCT [Suspect]
     Active Substance: HYDROCHLOROTHIAZIDE\OLMESARTAN MEDOXOMIL
     Indication: PRODUCT USED FOR UNKNOWN INDICATION
     Dosage: 20-12.5 MG, QD
     Route: 048

REACTIONS (6)
  - Sprue-like enteropathy [Recovering/Resolving]
  - Polyp [Not Recovered/Not Resolved]
  - Reactive gastropathy [Unknown]
  - Gastrooesophageal reflux disease [Recovering/Resolving]
  - Irritable bowel syndrome [Recovering/Resolving]
  - Syncope [Unknown]

NARRATIVE: CASE EVENT DATE: 2013
